FAERS Safety Report 6058987-X (Version None)
Quarter: 2009Q1

REPORT INFORMATION
  Report Type: 
  Country: None (occurrence: None)
  Receive Date: 20090130
  Receipt Date: 20090123
  Transmission Date: 20090719
  Serious: Yes (Hospitalization)
  Sender: FDA-Public Use
  Company Number: A0765746A

PATIENT
  Age: 46 Year
  Sex: Male
  Weight: 98.2 kg

DRUGS (1)
  1. AVANDIA [Suspect]
     Route: 048
     Dates: start: 20070201, end: 20070627

REACTIONS (3)
  - CORONARY ARTERY DISEASE [None]
  - HEART INJURY [None]
  - MYOCARDIAL INFARCTION [None]
